FAERS Safety Report 7020693-2 (Version None)
Quarter: 2010Q3

REPORT INFORMATION
  Report Type: 
  Country: None (occurrence: None)
  Receive Date: 20100929
  Receipt Date: 20100922
  Transmission Date: 20110219
  Serious: Yes (Other)
  Sender: FDA-Public Use
  Company Number: PHHO2010BR13815

PATIENT
  Sex: Male
  Weight: 63 kg

DRUGS (4)
  1. TASIGNA [Suspect]
     Indication: CHRONIC MYELOID LEUKAEMIA
     Dosage: 400 MG, BID
     Route: 048
     Dates: start: 20070509
  2. TASIGNA [Suspect]
     Dosage: 600 MG, BID
     Route: 048
     Dates: start: 20081101
  3. POTASSIUM [Concomitant]
     Indication: HYPOKALAEMIA
  4. CALCIUM [Concomitant]
     Indication: HYPOCALCAEMIA
     Dosage: UNK

REACTIONS (6)
  - BLAST CRISIS IN MYELOGENOUS LEUKAEMIA [None]
  - BONE EROSION [None]
  - BRAIN COMPRESSION [None]
  - CHLOROMA [None]
  - CHRONIC MYELOID LEUKAEMIA [None]
  - PAIN [None]
